FAERS Safety Report 8850939 (Version 7)
Quarter: 2013Q4

REPORT INFORMATION
  Report Type: Spontaneous
  Country: JP (occurrence: JP)
  Receive Date: 20121019
  Receipt Date: 20131202
  Transmission Date: 20140711
  Serious: Yes (Hospitalization)
  Sender: FDA-Public Use
  Company Number: JP-SANOFI-AVENTIS-2012SA074849

PATIENT
  Age: 68 Year
  Sex: Male
  Weight: 60.3 kg

DRUGS (34)
  1. LASIX [Suspect]
     Indication: OEDEMA PERIPHERAL
     Route: 048
     Dates: start: 20120703
  2. LASIX [Suspect]
     Indication: PROPHYLAXIS
     Route: 048
     Dates: start: 20120703
  3. CABAZITAXEL [Suspect]
     Indication: HORMONE-REFRACTORY PROSTATE CANCER
     Route: 041
     Dates: start: 20120725, end: 20120725
  4. CABAZITAXEL [Suspect]
     Indication: HORMONE-REFRACTORY PROSTATE CANCER
     Route: 041
     Dates: start: 20120815, end: 20120815
  5. TAMSULOSIN HYDROCHLORIDE [Concomitant]
     Indication: POLLAKIURIA
     Route: 048
     Dates: start: 20120731
  6. GASTER D [Concomitant]
     Indication: GASTRITIS
     Route: 048
     Dates: start: 20120801, end: 20121004
  7. GASTER D [Concomitant]
     Indication: GASTRITIS
     Route: 041
     Dates: start: 20120725, end: 20120725
  8. GASTER D [Concomitant]
     Indication: GASTRITIS
     Route: 041
     Dates: start: 20120815, end: 20120815
  9. GASTER D [Concomitant]
     Indication: GASTRITIS
     Route: 048
  10. ENTERONON R [Concomitant]
     Indication: GASTROINTESTINAL DISORDER
     Route: 048
  11. MECOBALAMIN [Concomitant]
     Indication: NEUROPATHY PERIPHERAL
     Route: 048
     Dates: start: 20111102
  12. MECOBALAMIN [Concomitant]
     Indication: PROPHYLAXIS
     Route: 048
     Dates: start: 20111102
  13. PREDONINE [Concomitant]
     Dosage: DOSE: 10 UNITS UNSPECIFIED.?DOSE PER ADMINISTRATIO: 10 UNITS UNSPECIFIED
     Route: 048
     Dates: start: 20120725, end: 20120814
  14. PREDONINE [Concomitant]
     Route: 048
     Dates: start: 20121005, end: 20121012
  15. PREDONINE [Concomitant]
     Route: 048
     Dates: start: 20121013, end: 20121018
  16. PREDONINE [Concomitant]
     Route: 048
     Dates: start: 20121019, end: 20121106
  17. PREDONINE [Concomitant]
     Dosage: DOSE: 10 UNITS UNSPECIFIED?DOSE PER ADMINISTRATIO: 10 UNITS UNSPECIFIED
     Route: 048
     Dates: start: 20120815, end: 20120913
  18. PREDONINE [Concomitant]
     Dosage: DOSE: 10 UNITSUNSPECIFIED?DOSE PER ADMINISTRATIO: 5 UNITS UNSPECIFIED
     Route: 048
     Dates: start: 20120914, end: 20120914
  19. PREDONINE [Concomitant]
     Route: 048
     Dates: start: 20121107, end: 20121204
  20. PREDONINE [Concomitant]
     Route: 048
     Dates: start: 20121205, end: 20130108
  21. PREDONINE [Concomitant]
     Route: 048
     Dates: start: 20130109, end: 20130205
  22. PREDONINE [Concomitant]
     Route: 048
     Dates: start: 20130206
  23. DEXAMETHASONE SODIUM PHOSPHATE [Concomitant]
     Indication: PROPHYLAXIS
     Route: 041
     Dates: start: 20120815, end: 20120815
  24. DEXAMETHASONE SODIUM PHOSPHATE [Concomitant]
     Indication: PROPHYLAXIS
     Route: 041
     Dates: start: 20120725, end: 20120725
  25. CHLORPHENIRAMINE MALEATE [Concomitant]
     Indication: PROPHYLAXIS
     Route: 041
     Dates: start: 20120815, end: 20120815
  26. CHLORPHENIRAMINE MALEATE [Concomitant]
     Indication: PROPHYLAXIS
     Route: 041
     Dates: start: 20120725, end: 20120725
  27. CANDESARTAN CILEXETIL [Concomitant]
     Indication: PROPHYLAXIS
     Route: 048
     Dates: start: 201110, end: 20120808
  28. ANTIBIOTICS-RESISTANT LACTIC ACID BACTERIAE [Concomitant]
     Indication: PROPHYLAXIS
     Route: 048
     Dates: start: 20110502, end: 20120924
  29. FILGRASTIM [Concomitant]
     Indication: PROPHYLAXIS
     Route: 058
     Dates: start: 20120803, end: 20120807
  30. FILGRASTIM [Concomitant]
     Indication: PROPHYLAXIS
     Route: 058
     Dates: start: 20120827, end: 20120829
  31. CEFEPIME HYDROCHLORIDE [Concomitant]
     Indication: PROPHYLAXIS
     Route: 041
     Dates: start: 20120806, end: 20120810
  32. CRAVIT [Concomitant]
     Indication: PNEUMONITIS
     Route: 048
     Dates: start: 20120914
  33. MINOMYCIN [Concomitant]
     Indication: PNEUMONITIS
     Route: 048
     Dates: start: 20120914
  34. DUTASTERIDE [Concomitant]
     Indication: PROPHYLAXIS
     Route: 048
     Dates: start: 20121107

REACTIONS (1)
  - Interstitial lung disease [Recovered/Resolved]
